FAERS Safety Report 8434741-6 (Version None)
Quarter: 2012Q2

REPORT INFORMATION
  Report Type: 
  Country: None (occurrence: None)
  Receive Date: 20120323
  Receipt Date: 20111122
  Transmission Date: 20120825
  Serious: Yes (Other)
  Sender: FDA-Public Use
  Company Number: 163-21880-11070522

PATIENT
  Age: 60 Year
  Sex: Female

DRUGS (1)
  1. REVLIMID [Suspect]
     Indication: MULTIPLE MYELOMA
     Dosage: 15 MG, DAILY X 21 DAYS, PO
     Route: 048
     Dates: start: 20081028, end: 20100118

REACTIONS (6)
  - NAUSEA [None]
  - CONSTIPATION [None]
  - DIZZINESS [None]
  - FATIGUE [None]
  - RASH PRURITIC [None]
  - EPISTAXIS [None]
